FAERS Safety Report 21746971 (Version 1)
Quarter: 2022Q4

REPORT INFORMATION
  Report Type: Spontaneous
  Country: US (occurrence: US)
  Receive Date: 20221219
  Receipt Date: 20221219
  Transmission Date: 20230113
  Serious: No
  Sender: FDA-Public Use
  Company Number: US-ORGANON-O2212USA001060

PATIENT
  Sex: Female

DRUGS (1)
  1. NEXPLANON [Suspect]
     Active Substance: ETONOGESTREL
     Dosage: 68MG;LEFT UPPER ARM
     Route: 059
     Dates: start: 20221024, end: 20221206

REACTIONS (5)
  - Implant site bruising [Unknown]
  - Implant site swelling [Unknown]
  - Implant site mass [Unknown]
  - Implant site fibrosis [Unknown]
  - Infection [Unknown]

NARRATIVE: CASE EVENT DATE: 20220101
